FAERS Safety Report 13472004 (Version 11)
Quarter: 2022Q1

REPORT INFORMATION
  Report Type: Spontaneous
  Country: GB (occurrence: GB)
  Receive Date: 20170424
  Receipt Date: 20220307
  Transmission Date: 20220423
  Serious: Yes (Other)
  Sender: FDA-Public Use
  Company Number: GB-SA-2017SA056430

PATIENT
  Age: 75 Year
  Sex: Female

DRUGS (31)
  1. BISOPROLOL [Suspect]
     Active Substance: BISOPROLOL
     Indication: Product used for unknown indication
     Dosage: UNK (SALT NOT SPECIFIED)
     Route: 065
  2. BISOPROLOL [Suspect]
     Active Substance: BISOPROLOL
     Dosage: 2 WEEK
     Route: 065
  3. CITALOPRAM [Suspect]
     Active Substance: CITALOPRAM HYDROBROMIDE
     Indication: Product used for unknown indication
     Dosage: 1 DOSAGE FORM, 2 WEEK
     Route: 065
  4. QUETIAPINE [Suspect]
     Active Substance: QUETIAPINE
     Indication: Product used for unknown indication
     Dosage: UNK
     Route: 048
  5. QUETIAPINE [Suspect]
     Active Substance: QUETIAPINE
     Dosage: 1 DOSAGE FORM, 2 WEEK
     Route: 065
  6. ROPINIROLE [Suspect]
     Active Substance: ROPINIROLE
     Indication: Product used for unknown indication
     Dosage: 1 DOSAGE FORM, 2 WEEK
     Route: 065
  7. ROPINIROLE [Suspect]
     Active Substance: ROPINIROLE
     Dosage: 2 WEEK (UNK, QOW )
     Route: 065
  8. HERBALS\SENNOSIDES [Suspect]
     Active Substance: HERBALS\SENNOSIDES
     Indication: Product used for unknown indication
     Dosage: 1 DOSAGE FORM, 2 WEEK
     Route: 065
  9. CEREZYME [Suspect]
     Active Substance: IMIGLUCERASE
     Indication: Product used for unknown indication
     Dosage: 800 INTERNATIONAL UNIT, 2 WEEK
     Route: 041
     Dates: end: 20170315
  10. CEREZYME [Suspect]
     Active Substance: IMIGLUCERASE
     Dosage: 800 INTERNATIONAL UNIT, 2 WEEK
     Route: 041
     Dates: start: 20170315, end: 20170329
  11. CEREZYME [Suspect]
     Active Substance: IMIGLUCERASE
     Dosage: 800 INTERNATIONAL UNIT, EVERY WEEK(DOSE:800 UNIT(S);)
     Route: 041
     Dates: start: 20170315, end: 20170329
  12. CEREZYME [Suspect]
     Active Substance: IMIGLUCERASE
     Dosage: 800 DF,QOW
     Route: 041
     Dates: end: 20210315
  13. CEREZYME [Suspect]
     Active Substance: IMIGLUCERASE
     Dosage: 800 IU, QOW
     Route: 041
     Dates: end: 20210329
  14. BENSERAZIDE HYDROCHLORIDE\LEVODOPA [Suspect]
     Active Substance: BENSERAZIDE HYDROCHLORIDE\LEVODOPA
     Indication: Product used for unknown indication
     Dosage: 1 DOSAGE FORM, 2 WEEK
     Route: 065
  15. BENSERAZIDE HYDROCHLORIDE\LEVODOPA [Suspect]
     Active Substance: BENSERAZIDE HYDROCHLORIDE\LEVODOPA
     Dosage: UNK (DOSAGE FORM; UNSPECIFIED)
     Route: 065
  16. CYCLIZINE [Suspect]
     Active Substance: CYCLIZINE
     Indication: Product used for unknown indication
     Dosage: UNK
     Route: 065
     Dates: start: 20170315
  17. CYCLIZINE [Suspect]
     Active Substance: CYCLIZINE
     Dosage: UNK, 2WEEK
     Route: 065
     Dates: end: 20170329
  18. CYCLIZINE [Suspect]
     Active Substance: CYCLIZINE
     Dosage: UNK
     Route: 065
     Dates: start: 20170329
  19. DOMPERIDONE [Suspect]
     Active Substance: DOMPERIDONE
     Indication: Product used for unknown indication
     Dosage: 1 DOSAGE FORM, 2 WEEK
     Route: 065
     Dates: end: 20170329
  20. DOMPERIDONE [Suspect]
     Active Substance: DOMPERIDONE
     Dosage: UNK
     Route: 065
     Dates: end: 20210329
  21. LACTULOSE [Suspect]
     Active Substance: LACTULOSE
     Indication: Product used for unknown indication
     Dosage: 2 WEEK
     Route: 065
  22. LANSOPRAZOLE [Suspect]
     Active Substance: LANSOPRAZOLE
     Indication: Product used for unknown indication
     Dosage: 1 DOSAGE FORM (EVERY 2 WEEKS)
     Route: 065
  23. LANSOPRAZOLE [Suspect]
     Active Substance: LANSOPRAZOLE
     Dosage: 2 WEEK
     Route: 065
  24. LEVODOPA [Suspect]
     Active Substance: LEVODOPA
     Indication: Product used for unknown indication
     Dosage: 2 WEEK
     Route: 065
  25. QUETIAPINE FUMARATE [Suspect]
     Active Substance: QUETIAPINE FUMARATE
     Indication: Product used for unknown indication
     Dosage: 2 WEEK
     Route: 065
  26. QUETIAPINE FUMARATE [Suspect]
     Active Substance: QUETIAPINE FUMARATE
     Dosage: UNK
     Route: 048
  27. QUETIAPINE FUMARATE [Suspect]
     Active Substance: QUETIAPINE FUMARATE
     Dosage: 1 DF (EVERY 2 WEEKS)
  28. RIVASTIGMINE [Suspect]
     Active Substance: RIVASTIGMINE
     Indication: Product used for unknown indication
     Dosage: 1 DOSAGE FORM, 2 WEEK
     Route: 065
  29. SENNA [Suspect]
     Active Substance: SENNA LEAF\SENNOSIDES\SENNOSIDES A AND B
     Indication: Product used for unknown indication
     Dosage: 1 DOSAGE FORM(EVERY 2 WEEKS)
     Route: 065
  30. SENNOSIDES [Suspect]
     Active Substance: SENNOSIDES
     Indication: Product used for unknown indication
     Dosage: 1 DOSAGE FORM (EVERY 2 WEEKS)
     Route: 065
  31. BENSERAZIDE HYDROCHLORIDE\LEVODOPA [Concomitant]
     Active Substance: BENSERAZIDE HYDROCHLORIDE\LEVODOPA
     Indication: Product used for unknown indication
     Dosage: UNK
     Route: 065

REACTIONS (2)
  - Parkinson^s disease [Unknown]
  - Dizziness [Unknown]
